FAERS Safety Report 20060493 (Version 2)
Quarter: 2022Q1

REPORT INFORMATION
  Report Type: Spontaneous
  Country: US (occurrence: US)
  Receive Date: 20211112
  Receipt Date: 20220110
  Transmission Date: 20220423
  Serious: No
  Sender: FDA-Public Use
  Company Number: US-SA-SAC20211111000186

PATIENT
  Age: 49 Year
  Sex: Male
  Weight: 95.238 kg

DRUGS (23)
  1. ALDURAZYME [Suspect]
     Active Substance: LARONIDASE
     Indication: Mucopolysaccharidosis
     Dosage: 56 MG, QW
     Route: 042
     Dates: start: 20140716
  2. ALBUTEROL [Concomitant]
     Active Substance: ALBUTEROL
  3. ACETAMINOPHEN [Concomitant]
     Active Substance: ACETAMINOPHEN
     Route: 065
  4. HEPARIN [Concomitant]
     Active Substance: HEPARIN SODIUM
  5. SODIUM CHLORIDE [Concomitant]
     Active Substance: SODIUM CHLORIDE
  6. EPINEPHRINE [Concomitant]
     Active Substance: EPINEPHRINE
  7. CYMBALTA [Concomitant]
     Active Substance: DULOXETINE HYDROCHLORIDE
     Route: 065
  8. ACTIGALL [Concomitant]
     Active Substance: URSODIOL
  9. LEVOCABASTINE HYDROCHLORIDE [Concomitant]
     Active Substance: LEVOCABASTINE HYDROCHLORIDE
  10. ARNUITY ELLIPTA [Concomitant]
     Active Substance: FLUTICASONE FUROATE
  11. GABAPENTIN [Concomitant]
     Active Substance: GABAPENTIN
  12. TRAZODONE [Concomitant]
     Active Substance: TRAZODONE HYDROCHLORIDE
  13. VITAMIN D3 [Concomitant]
     Active Substance: CHOLECALCIFEROL
  14. OXYCONTIN [Concomitant]
     Active Substance: OXYCODONE HYDROCHLORIDE
  15. LEVSIN [Concomitant]
     Active Substance: HYOSCYAMINE SULFATE
  16. CYCLOBENZAPRINE [Concomitant]
     Active Substance: CYCLOBENZAPRINE
  17. MUPIROCIN [Concomitant]
     Active Substance: MUPIROCIN
  18. LISINOPRIL [Concomitant]
     Active Substance: LISINOPRIL
  19. ACYCLOVIR [Concomitant]
     Active Substance: ACYCLOVIR
  20. PREDNISOLONE [Concomitant]
     Active Substance: PREDNISOLONE
  21. NEPAFENAC [Concomitant]
     Active Substance: NEPAFENAC
  22. DIPHENHYDRAMINE [Concomitant]
     Active Substance: DIPHENHYDRAMINE
     Route: 065
  23. PROTONIX [Concomitant]
     Active Substance: PANTOPRAZOLE SODIUM
     Route: 065

REACTIONS (4)
  - Exposure to SARS-CoV-2 [Unknown]
  - Cough [Unknown]
  - Conjunctivitis [Unknown]
  - Corneal transplant [Unknown]

NARRATIVE: CASE EVENT DATE: 20211001
